FAERS Safety Report 25007016 (Version 2)
Quarter: 2025Q3

REPORT INFORMATION
  Report Type: Report from Study
  Country: EU (occurrence: EU)
  Receive Date: 20250225
  Receipt Date: 20250810
  Transmission Date: 20251020
  Serious: Yes (Disabling)
  Sender: ALEXION PHARMACEUTICALS
  Company Number: EU-AstraZeneca-CH-00809768A

PATIENT
  Sex: Female

DRUGS (3)
  1. DAPAGLIFLOZIN [Suspect]
     Active Substance: DAPAGLIFLOZIN
     Indication: Renal disorder
  2. ENALAPRIL [Concomitant]
     Active Substance: ENALAPRIL
     Route: 065
  3. EZETIMIBE\ROSUVASTATIN [Concomitant]
     Active Substance: EZETIMIBE\ROSUVASTATIN
     Indication: Blood cholesterol
     Route: 065

REACTIONS (2)
  - Nightmare [Not Recovered/Not Resolved]
  - Sleep disorder [Not Recovered/Not Resolved]
